FAERS Safety Report 13192126 (Version 1)
Quarter: 2017Q1

REPORT INFORMATION
  Report Type: Report from Study
  Country: DE (occurrence: DE)
  Receive Date: 20170207
  Receipt Date: 20170207
  Transmission Date: 20170428
  Serious: Yes (Hospitalization)
  Sender: FDA-Public Use
  Company Number: DE-ROCHE-1685942

PATIENT
  Sex: Male

DRUGS (17)
  1. ASPIRIN. [Concomitant]
     Active Substance: ASPIRIN
     Indication: CARDIAC DISORDER
     Route: 065
  2. MTX SUPPORT [Concomitant]
     Active Substance: CYANOCOBALAMIN\FOLIC ACID
     Indication: RHEUMATOID ARTHRITIS
     Route: 048
  3. VITAMIN D3 [Concomitant]
     Active Substance: CHOLECALCIFEROL
     Route: 065
  4. METOPROLOL. [Concomitant]
     Active Substance: METOPROLOL
     Indication: CARDIAC DISORDER
     Dosage: BETA
     Route: 065
  5. HALOPERIDOL. [Concomitant]
     Active Substance: HALOPERIDOL
     Indication: NAUSEA
     Route: 065
  6. SIMVASTIN [Concomitant]
     Active Substance: SIMVASTATIN
     Indication: HYPERCHOLESTEROLAEMIA
     Route: 065
  7. TILIDIN COMP [Concomitant]
     Active Substance: NALOXONE HYDROCHLORIDE\TILIDINE HYDROCHLORIDE
     Indication: PAIN
     Dosage: TILIDIN AL COMP
     Route: 065
  8. ROACTEMRA [Suspect]
     Active Substance: TOCILIZUMAB
     Indication: RHEUMATOID ARTHRITIS
     Dosage: ON FRIDAYS
     Route: 058
     Dates: start: 20151204
  9. NITROLINGUAL [Concomitant]
     Active Substance: NITROGLYCERIN
     Dosage: IN CASE OF EMERGENCY?AKUT
     Route: 060
  10. HCT 1 A PHARMA [Concomitant]
     Indication: CARDIAC DISORDER
     Route: 065
  11. PANTOPRAZOL [Concomitant]
     Active Substance: PANTOPRAZOLE SODIUM
     Dosage: AL
     Route: 065
  12. SYMBICORD [Concomitant]
     Active Substance: BUDESONIDE\FORMOTEROL
     Indication: LUNG INFECTION
     Dosage: AS REQUIRED BY INFECTIONS
     Route: 055
  13. NOVAMINSULFON [Concomitant]
     Active Substance: METAMIZOLE
     Indication: PAIN
     Dosage: COMB
     Route: 065
  14. PREDNISOLON [Concomitant]
     Active Substance: PREDNISOLONE
     Dosage: 5-20 MG (EVERY DAY)
     Route: 065
  15. ROACTEMRA [Suspect]
     Active Substance: TOCILIZUMAB
     Indication: POLYMYALGIA RHEUMATICA
  16. FOLIC ACID. [Concomitant]
     Active Substance: FOLIC ACID
     Route: 065
  17. SYMBICORD [Concomitant]
     Active Substance: BUDESONIDE\FORMOTEROL
     Indication: CHRONIC OBSTRUCTIVE PULMONARY DISEASE
     Route: 055

REACTIONS (6)
  - Lacrimation increased [Unknown]
  - Vision blurred [Recovered/Resolved]
  - Influenza [Unknown]
  - Peripheral swelling [Unknown]
  - Tunnel vision [Recovered/Resolved]
  - Hepatic enzyme increased [Unknown]
